FAERS Safety Report 12484623 (Version 1)
Quarter: 2016Q2

REPORT INFORMATION
  Report Type: Spontaneous
  Country: US (occurrence: US)
  Receive Date: 20160621
  Receipt Date: 20160621
  Transmission Date: 20160815
  Serious: No
  Sender: FDA-Public Use
  Company Number: US-ACTAVIS-2016-05719

PATIENT
  Age: 53 Year
  Sex: Female

DRUGS (2)
  1. METFORMIN HYDROCHLORIDE. [Suspect]
     Active Substance: METFORMIN HYDROCHLORIDE
     Indication: BLOOD GLUCOSE ABNORMAL
     Dosage: 1000 MG, DAILY
     Route: 048
     Dates: start: 201510
  2. METFORMIN HYDROCHLORIDE (WATSON LABORATORIES) [Suspect]
     Active Substance: METFORMIN HYDROCHLORIDE
     Indication: BLOOD GLUCOSE ABNORMAL
     Dosage: UNK, UNKNOWN
     Route: 065

REACTIONS (5)
  - Oropharyngeal pain [Not Recovered/Not Resolved]
  - Abdominal discomfort [Unknown]
  - Defaecation urgency [Unknown]
  - Oesophageal injury [Recovered/Resolved]
  - Abdominal distension [Unknown]
